FAERS Safety Report 5057912-8 (Version None)
Quarter: 2006Q3

REPORT INFORMATION
  Report Type: 
  Country: None (occurrence: None)
  Receive Date: 20060721
  Receipt Date: 20060331
  Transmission Date: 20061208
  Serious: Yes (Other)
  Sender: FDA-Public Use
  Company Number: US-GLAXOSMITHKLINE-A0599918A

PATIENT
  Age: 63 Year
  Sex: Male
  Weight: 126.4 kg

DRUGS (4)
  1. AVANDIA [Suspect]
     Route: 048
  2. METFORMIN [Suspect]
  3. NO CONCURRENT MEDICATION [Concomitant]
  4. AVANDAMET [Concomitant]
     Dosage: 1TAB TWICE PER DAY
     Route: 048

REACTIONS (2)
  - DIABETES MELLITUS INADEQUATE CONTROL [None]
  - THERAPEUTIC RESPONSE DECREASED [None]
